FAERS Safety Report 9761013 (Version 2)
Quarter: 2016Q4

REPORT INFORMATION
  Report Type: Spontaneous
  Country: US (occurrence: US)
  Receive Date: 20131216
  Receipt Date: 20161228
  Transmission Date: 20170207
  Serious: No
  Sender: FDA-Public Use
  Company Number: US-PFIZER INC-2013356555

PATIENT
  Age: 75 Year
  Sex: Male

DRUGS (7)
  1. PROTONIX [Suspect]
     Active Substance: PANTOPRAZOLE SODIUM
     Indication: GASTROOESOPHAGEAL REFLUX DISEASE
     Dosage: 40 MG, UNK
  2. BENTYL [Suspect]
     Active Substance: DICYCLOMINE HYDROCHLORIDE
     Indication: IRRITABLE BOWEL SYNDROME
     Dosage: 20 MG, UNK
  3. TIKOSYN [Suspect]
     Active Substance: DOFETILIDE
     Indication: ATRIAL FIBRILLATION
     Dosage: 250 UG, 2X/DAY
     Route: 048
  4. METOPROLOL TARTRATE. [Suspect]
     Active Substance: METOPROLOL TARTRATE
     Indication: HYPERTENSION
     Dosage: 20 MG, UNK
  5. COUMADINE [Suspect]
     Active Substance: WARFARIN SODIUM
     Dosage: 5 MG, 1X/DAY
  6. ATIVAN [Suspect]
     Active Substance: LORAZEPAM
     Indication: IRRITABLE BOWEL SYNDROME
     Dosage: 1 MG, 2X/DAY
  7. LINZESS [Suspect]
     Active Substance: LINACLOTIDE
     Indication: IRRITABLE BOWEL SYNDROME
     Dosage: 290 UG, UNK

REACTIONS (4)
  - Nausea [Unknown]
  - Malaise [Unknown]
  - Asthenia [Unknown]
  - Fatigue [Unknown]
